FAERS Safety Report 23957019 (Version 1)
Quarter: 2024Q2

REPORT INFORMATION
  Report Type: Report from Study
  Country: IT (occurrence: IT)
  Receive Date: 20240610
  Receipt Date: 20240610
  Transmission Date: 20240716
  Serious: Yes (Other)
  Sender: FDA-Public Use
  Company Number: None

PATIENT
  Age: 56 Year
  Sex: Female

DRUGS (4)
  1. OXALIPLATIN [Suspect]
     Active Substance: OXALIPLATIN
     Indication: Gastrointestinal adenocarcinoma
     Dosage: 85 MG/M2
     Route: 042
     Dates: start: 20221122, end: 20230710
  2. FLUOROURACIL [Concomitant]
     Active Substance: FLUOROURACIL
     Indication: Gastrointestinal adenocarcinoma
     Dosage: BOLUS 400 MG/M2 ?INFUSOR 2400 MG /M2 ?EVERY 14 DAYS: 5-FLUOROURACILE
     Route: 042
     Dates: start: 20221122, end: 20240312
  3. LEVOLEUCOVORIN CALCIUM [Concomitant]
     Active Substance: LEVOLEUCOVORIN CALCIUM
     Indication: Gastrointestinal adenocarcinoma
     Dosage: 200 MG/M2
     Route: 042
     Dates: start: 20221122, end: 20240312
  4. NIVOLUMAB [Concomitant]
     Active Substance: NIVOLUMAB
     Indication: Gastrointestinal adenocarcinoma
     Dosage: 240 MG
     Route: 042
     Dates: start: 20221122

REACTIONS (5)
  - Oxygen saturation decreased [Recovered/Resolved]
  - Drug hypersensitivity [Recovered/Resolved]
  - Dyspnoea [Recovered/Resolved]
  - Abdominal pain upper [Recovered/Resolved]
  - Nausea [Recovered/Resolved]

NARRATIVE: CASE EVENT DATE: 20230710
